FAERS Safety Report 5031545-1 (Version None)
Quarter: 2006Q2

REPORT INFORMATION
  Report Type: 
  Country: None (occurrence: None)
  Receive Date: 20060616
  Receipt Date: 20060601
  Transmission Date: 20061013
  Serious: Yes (Other)
  Sender: FDA-Public Use
  Company Number: 226065

PATIENT
  Age: 68 Year

DRUGS (2)
  1. AVASTIN [Suspect]
     Indication: ADENOCARCINOMA PANCREAS
     Dosage: 5MG/KG, DAY 1+8Q4W, INTRAVENOUS
     Route: 042
     Dates: start: 20051128
  2. GEMCITABINE [Suspect]
     Indication: ADENOCARCINOMA PANCREAS
     Dosage: 1 G/M2, 1/MONTH, INTRAVENOUS
     Route: 042
     Dates: start: 20051128

REACTIONS (3)
  - CHOLECYSTITIS [None]
  - COUGH [None]
  - PLATELET COUNT DECREASED [None]
